FAERS Safety Report 21318201 (Version 2)
Quarter: 2024Q3

REPORT INFORMATION
  Report Type: Spontaneous
  Country: US (occurrence: US)
  Receive Date: 20220911
  Receipt Date: 20240830
  Transmission Date: 20241017
  Serious: No
  Sender: SANOFI AVENTIS
  Company Number: US-SA-SAC20220829000642

PATIENT
  Age: 60 Year
  Sex: Female

DRUGS (1)
  1. DUPIXENT [Suspect]
     Active Substance: DUPILUMAB
     Indication: Dermatitis atopic
     Dosage: 300 MG, QOW
     Route: 058
     Dates: start: 20200929

REACTIONS (11)
  - COVID-19 [Unknown]
  - Pain [Unknown]
  - Muscle strain [Unknown]
  - Hypoaesthesia [Unknown]
  - Rash papular [Unknown]
  - Rash pruritic [Unknown]
  - Fatigue [Unknown]
  - Middle insomnia [Unknown]
  - Pain of skin [Unknown]
  - Herpes zoster [Unknown]
  - Oral herpes [Recovered/Resolved]

NARRATIVE: CASE EVENT DATE: 20220824
